FAERS Safety Report 11102256 (Version 3)
Quarter: 2016Q3

REPORT INFORMATION
  Report Type: Spontaneous
  Country: US (occurrence: US)
  Receive Date: 20150511
  Receipt Date: 20160812
  Transmission Date: 20161109
  Serious: Yes (Other)
  Sender: FDA-Public Use
  Company Number: US-ASTRAZENECA-2013SE92463

PATIENT
  Age: 22033 Day
  Sex: Female
  Weight: 74.8 kg

DRUGS (30)
  1. VITAMIN C [Concomitant]
     Active Substance: ASCORBIC ACID
  2. VITAMIN B12 [Concomitant]
     Active Substance: CYANOCOBALAMIN
     Dosage: EVERY DAY
  3. CENTRUM [Concomitant]
     Active Substance: VITAMINS
  4. AMLODIPINE BESYLATE. [Concomitant]
     Active Substance: AMLODIPINE BESYLATE
     Dosage: 0.5MG TABS; 10 MG; EVERY DAY
  5. VITAMIN E [Concomitant]
     Active Substance: .ALPHA.-TOCOPHEROL
     Dates: start: 20130905
  6. PREMPRO [Concomitant]
     Active Substance: ESTROGENS, CONJUGATED\MEDROXYPROGESTERONE ACETATE
     Dosage: 1DF: 0.45-1.5MG
  7. GABAPENTIN. [Concomitant]
     Active Substance: GABAPENTIN
  8. CRESTOR [Concomitant]
     Active Substance: ROSUVASTATIN CALCIUM
  9. BYDUREON [Suspect]
     Active Substance: EXENATIDE
     Indication: TYPE 2 DIABETES MELLITUS
     Route: 058
     Dates: start: 20130916
  10. SAVELLA [Concomitant]
     Active Substance: MILNACIPRAN HYDROCHLORIDE
  11. DILAUDID [Concomitant]
     Active Substance: HYDROMORPHONE HYDROCHLORIDE
     Dosage: AT BEDTIME
  12. CALCIUM CITRATE [Concomitant]
     Active Substance: CALCIUM CITRATE
     Dosage: 2TABS; 315 MG; EVERY DAY
  13. ASA [Concomitant]
     Active Substance: ASPIRIN
  14. VITAMIN D3 [Concomitant]
     Active Substance: CHOLECALCIFEROL
     Dates: start: 20130905
  15. SAVELLA [Concomitant]
     Active Substance: MILNACIPRAN HYDROCHLORIDE
  16. LIDODERM [Concomitant]
     Active Substance: LIDOCAINE
     Dosage: UNK UNK, AS REQUIRED
  17. LEVOTHYROXINE SODIUM. [Concomitant]
     Active Substance: LEVOTHYROXINE SODIUM
  18. REMICADE [Concomitant]
     Active Substance: INFLIXIMAB
     Route: 042
  19. NEXIUM [Concomitant]
     Active Substance: ESOMEPRAZOLE MAGNESIUM
  20. FLUTICASONE PROPIONATE. [Concomitant]
     Active Substance: FLUTICASONE PROPIONATE
  21. CYCLOBENZAPRINE HCL [Concomitant]
     Active Substance: CYCLOBENZAPRINE HYDROCHLORIDE
  22. BYDUREON [Suspect]
     Active Substance: EXENATIDE
     Indication: TYPE 2 DIABETES MELLITUS
     Dosage: 2 MG 4 COUNT; ONCE A WEEK
     Route: 058
     Dates: start: 2014
  23. ONDANSETRON [Concomitant]
     Active Substance: ONDANSETRON
     Dosage: 4.0MG AS REQUIRED
  24. NIASPAN [Concomitant]
     Active Substance: NIACIN
  25. CYCLOBENZAPRINE HCL [Concomitant]
     Active Substance: CYCLOBENZAPRINE HYDROCHLORIDE
  26. CARVEDILOL. [Concomitant]
     Active Substance: CARVEDILOL
  27. BYDUREON [Suspect]
     Active Substance: EXENATIDE
     Indication: TYPE 2 DIABETES MELLITUS
     Route: 058
     Dates: start: 2012
  28. TYLENOL EXTRA STRENGTH [Concomitant]
     Active Substance: ACETAMINOPHEN
  29. POTASSIUM CHLORIDE. [Concomitant]
     Active Substance: POTASSIUM CHLORIDE
     Dosage: 1DF: 20MEQ  CAP; EVERY DAY
  30. CELEBREX [Concomitant]
     Active Substance: CELECOXIB

REACTIONS (8)
  - Injection site necrosis [Unknown]
  - Circumstance or information capable of leading to medication error [Unknown]
  - Sinusitis [Not Recovered/Not Resolved]
  - Drug dose omission [Unknown]
  - Injection site mass [Unknown]
  - Injection site pain [Unknown]
  - Injection site nodule [Unknown]
  - Device leakage [Unknown]

NARRATIVE: CASE EVENT DATE: 20131008
